FAERS Safety Report 7690982-7 (Version None)
Quarter: 2011Q3

REPORT INFORMATION
  Report Type: 
  Country: None (occurrence: None)
  Receive Date: 20110812
  Receipt Date: 20110729
  Transmission Date: 20111222
  Serious: Yes (Other)
  Sender: FDA-Public Use
  Company Number: 2011MA009065

PATIENT
  Age: 52 Year
  Sex: Male

DRUGS (1)
  1. PRAMIPEXOLE DIHYDROCHLORIDE [Suspect]
     Indication: PARKINSON'S DISEASE
     Dosage: 3 MG;

REACTIONS (12)
  - COMPULSIVE SHOPPING [None]
  - OBSESSIVE THOUGHTS [None]
  - DISINHIBITION [None]
  - PATHOLOGICAL GAMBLING [None]
  - ECONOMIC PROBLEM [None]
  - MEMORY IMPAIRMENT [None]
  - DISTURBANCE IN SOCIAL BEHAVIOUR [None]
  - COGNITIVE DISORDER [None]
  - FATIGUE [None]
  - SOCIAL PROBLEM [None]
  - JUDGEMENT IMPAIRED [None]
  - EUPHORIC MOOD [None]
